FAERS Safety Report 7417678-0 (Version None)
Quarter: 2011Q2

REPORT INFORMATION
  Report Type: 
  Country: None (occurrence: None)
  Receive Date: 20110412
  Receipt Date: 20110412
  Transmission Date: 20111010
  Serious: Yes (Hospitalization)
  Sender: FDA-Public Use
  Company Number: None

PATIENT
  Age: 44 Year
  Sex: Male
  Weight: 117 kg

DRUGS (1)
  1. ANAKINRA [Suspect]
     Indication: GOUT
     Dosage: 100 MG EVERY DAY IM
     Route: 030
     Dates: start: 20100901, end: 20100907

REACTIONS (9)
  - PYREXIA [None]
  - CELLULITIS [None]
  - STAPHYLOCOCCAL INFECTION [None]
  - ANGIOEDEMA [None]
  - ABSCESS [None]
  - SWELLING FACE [None]
  - LIP SWELLING [None]
  - CHILLS [None]
  - OEDEMA MOUTH [None]
